FAERS Safety Report 18754308 (Version 1)
Quarter: 2021Q1

REPORT INFORMATION
  Report Type: Spontaneous
  Country: CA (occurrence: CA)
  Receive Date: 20210119
  Receipt Date: 20210119
  Transmission Date: 20210419
  Serious: Yes (Hospitalization)
  Sender: FDA-Public Use
  Company Number: CA-ACCORD-214348

PATIENT
  Age: 79 Year
  Sex: Male
  Weight: 74.39 kg

DRUGS (11)
  1. CARBIDOPA/LEVODOPA [Concomitant]
     Active Substance: CARBIDOPA\LEVODOPA
  2. ATIVAN [Concomitant]
     Active Substance: LORAZEPAM
  3. METOCLOPRAMIDE. [Concomitant]
     Active Substance: METOCLOPRAMIDE
  4. CARBOPLATIN. [Suspect]
     Active Substance: CARBOPLATIN
     Indication: CHEMOTHERAPY
     Dosage: SOLUTION INTRAVENOUS, 1 EVERY 21 DAYS
     Route: 042
  5. DEXAMETHASONE. [Concomitant]
     Active Substance: DEXAMETHASONE
     Dosage: LIQUID INTRA? ARTICULAR
  6. VENTOLIN [Concomitant]
     Active Substance: ALBUTEROL SULFATE
     Route: 055
  7. PARACETAMOL [Concomitant]
     Active Substance: ACETAMINOPHEN
  8. ONDANSETRON [Concomitant]
     Active Substance: ONDANSETRON
  9. TELMISARTAN. [Concomitant]
     Active Substance: TELMISARTAN
  10. IRINOTECAN [Suspect]
     Active Substance: IRINOTECAN
     Indication: CHEMOTHERAPY
     Dosage: SOLUTION INTRAVENOUS,1 EVERY 21 DAYS
  11. ATORVASTATIN [Concomitant]
     Active Substance: ATORVASTATIN

REACTIONS (1)
  - Enterocolitis [Unknown]
